FAERS Safety Report 9068694 (Version 1)
Quarter: 2013Q1

REPORT INFORMATION
  Report Type: Spontaneous
  Country: US (occurrence: None)
  Receive Date: 20130212
  Receipt Date: 20130212
  Transmission Date: 20140127
  Serious: Yes (Other)
  Sender: FDA-Public Use
  Company Number: None

PATIENT
  Sex: Male
  Weight: 104.33 kg

DRUGS (2)
  1. MONTELUKAST [Suspect]
     Indication: ASTHMA
     Dosage: 5 MG  ONE DLY  ORAL - 047
     Route: 048
     Dates: start: 201209
  2. MONTELUKAST [Suspect]
     Indication: RHINITIS ALLERGIC
     Dosage: 5 MG  ONE DLY  ORAL - 047
     Route: 048
     Dates: start: 201209

REACTIONS (3)
  - Nausea [None]
  - Abdominal discomfort [None]
  - Mood swings [None]
